FAERS Safety Report 4594916-3 (Version None)
Quarter: 2005Q1

REPORT INFORMATION
  Report Type: 
  Country: None (occurrence: None)
  Receive Date: 20050224
  Receipt Date: 20030804
  Transmission Date: 20050727
  Serious: Yes (Other)
  Sender: FDA-Public Use
  Company Number: GXKR2003GB00612

PATIENT
  Age: 2 Year
  Sex: Female
  Weight: 12.5 kg

DRUGS (8)
  1. VERAPAMIL [Suspect]
     Indication: PROPHYLAXIS
     Dosage: 20 MG, TID, ORAL
     Route: 048
     Dates: start: 20030418, end: 20030707
  2. PHENYTOIN [Concomitant]
  3. RANITIDINE [Concomitant]
  4. DIPYRIDAMOLE (DYPIRIDAMOLE) [Concomitant]
  5. BACLOFEN [Concomitant]
  6. DANTROLENE SODIUM [Concomitant]
  7. ASPIRIN [Concomitant]
  8. MELATONIN (MELATONIN) [Concomitant]

REACTIONS (5)
  - ABDOMINAL DISTENSION [None]
  - ASPIRATION [None]
  - BILIARY TRACT DISORDER [None]
  - ELECTROLYTE IMBALANCE [None]
  - URINARY RETENTION [None]
